FAERS Safety Report 4591283-6 (Version None)
Quarter: 2005Q1

REPORT INFORMATION
  Report Type: 
  Country: None (occurrence: None)
  Receive Date: 20050217
  Receipt Date: 20050208
  Transmission Date: 20050727
  Serious: Yes (Other)
  Sender: FDA-Public Use
  Company Number: PHEH2005US01826

PATIENT
  Age: 33 Year
  Sex: Female
  Weight: 85.3 kg

DRUGS (2)
  1. LAMISIL [Suspect]
     Indication: OTITIS EXTERNA FUNGAL
     Dosage: AURICULAR
     Route: 001
     Dates: start: 20050107, end: 20050108
  2. CONTRACEPTIVE (NON-ORAL) (CONTRACEPTIVE (NON-ORAL)) [Concomitant]

REACTIONS (9)
  - ACCIDENTAL EXPOSURE [None]
  - EAR DISCOMFORT [None]
  - EPISTAXIS [None]
  - NAUSEA [None]
  - NEPHROLITHIASIS [None]
  - PAIN [None]
  - THROAT IRRITATION [None]
  - TYMPANIC MEMBRANE PERFORATION [None]
  - VOMITING [None]
